FAERS Safety Report 5397694-3 (Version None)
Quarter: 2007Q3

REPORT INFORMATION
  Report Type: 
  Country: None (occurrence: None)
  Receive Date: 20070723
  Receipt Date: 20070723
  Transmission Date: 20080115
  Serious: Yes (Other)
  Sender: FDA-Public Use
  Company Number: None

PATIENT
  Sex: Female

DRUGS (5)
  1. REVLIMID [Suspect]
     Indication: MULTIPLE MYELOMA
     Dosage: 25MG  DAILY 21D/28D   PO
     Route: 048
  2. DEXAMETHASONE [Concomitant]
  3. PAROXETINE [Concomitant]
  4. TRAZODONE HCL [Concomitant]
  5. NAPHCON-A OPTHALMIC DROP [Concomitant]

REACTIONS (1)
  - NEUROPATHY PERIPHERAL [None]
